FAERS Safety Report 4637323-7 (Version None)
Quarter: 2005Q2

REPORT INFORMATION
  Report Type: 
  Country: None (occurrence: None)
  Receive Date: 20050328
  Receipt Date: 20041123
  Transmission Date: 20051028
  Serious: No
  Sender: FDA-Public Use
  Company Number: USA041184536

PATIENT
  Age: 60 Year
  Sex: Female

DRUGS (4)
  1. STRATTERA [Suspect]
     Dosage: 40 MG IN THE EVENING
     Dates: start: 20041117, end: 20041123
  2. PROZAC [Suspect]
     Indication: DEPRESSION
     Route: 048
  3. AMITRIPTYLINE [Concomitant]
  4. ZOLOFT [Concomitant]

REACTIONS (5)
  - DRUG INEFFECTIVE [None]
  - FATIGUE [None]
  - HUNGER [None]
  - INCREASED APPETITE [None]
  - SOMNOLENCE [None]
